FAERS Safety Report 14897782 (Version 2)
Quarter: 2019Q1

REPORT INFORMATION
  Report Type: Spontaneous
  Country: PL (occurrence: PL)
  Receive Date: 20180515
  Receipt Date: 20190320
  Transmission Date: 20190417
  Serious: Yes (Death, Life-Threatening, Hospitalization, Other)
  Sender: FDA-Public Use
  Company Number: PL-MYLANLABS-2018M1031383

PATIENT
  Age: 69 Year
  Sex: Female

DRUGS (11)
  1. MIDAZOLAM [Concomitant]
     Active Substance: MIDAZOLAM HYDROCHLORIDE
     Indication: SEDATION
     Dosage: 2 MG, OTHER (PER HOUR)
     Route: 042
  2. NORADRENALINE                      /00127501/ [Concomitant]
     Active Substance: NOREPINEPHRINE
     Dosage: 0.2 MICROGRAM/KILOGRAM, 1 MINUTES,288 MICROGRAM/KG DAILY
     Route: 065
  3. METHYLPREDNISOLONE. [Suspect]
     Active Substance: METHYLPREDNISOLONE
     Indication: HAEMOLYSIS
     Dosage: 1000 MILLIGRAM
     Route: 042
  4. CEFEPIME [Concomitant]
     Active Substance: CEFEPIME HYDROCHLORIDE
     Indication: ANTIBIOTIC THERAPY
     Dosage: UNK
  5. MORPHINE [Concomitant]
     Active Substance: MORPHINE
     Indication: SEDATION
     Dosage: 1 MILLIGRAM, QH,24 MILLIGRAM DAILY
     Route: 042
  6. AMIKACIN. [Concomitant]
     Active Substance: AMIKACIN
     Indication: ANTIBIOTIC THERAPY
     Route: 065
  7. HYDROXYZINE [Concomitant]
     Active Substance: HYDROXYZINE HYDROCHLORIDE
     Route: 065
  8. MEROPENEM. [Concomitant]
     Active Substance: MEROPENEM
     Indication: ANTIBIOTIC THERAPY
     Dosage: UNK,CEFEPIME WAS REPLACED BY MEROPENEM
  9. DOBUTAMINE [Concomitant]
     Active Substance: DOBUTAMINE\DOBUTAMINE HYDROCHLORIDE
     Dosage: UNK
     Route: 042
  10. BENDAMUSTINE HYDROCHLORIDE. [Suspect]
     Active Substance: BENDAMUSTINE HYDROCHLORIDE
     Indication: CHRONIC LYMPHOCYTIC LEUKAEMIA
     Dosage: UNK, CYCLIC
     Route: 042
  11. PREDNISONE. [Concomitant]
     Active Substance: PREDNISONE
     Indication: CHRONIC LYMPHOCYTIC LEUKAEMIA
     Dosage: UNK UNK, UNKNOWN FREQ. (REGIMEN: CHLORAMBUCIL-PREDNISONE)
     Route: 065

REACTIONS (26)
  - Disseminated intravascular coagulation [Fatal]
  - Multiple organ dysfunction syndrome [Fatal]
  - Back pain [Unknown]
  - Cardiac arrest [Fatal]
  - Lymphadenopathy [Unknown]
  - Jaundice [Unknown]
  - Pyrexia [Unknown]
  - Thrombocytopenia [Unknown]
  - Haemolysis [Fatal]
  - Renal disorder [Fatal]
  - Agitation [Unknown]
  - Hypotension [Unknown]
  - Autoimmune haemolytic anaemia [Fatal]
  - Hyporesponsive to stimuli [Unknown]
  - Renal injury [Unknown]
  - Dyspnoea [Unknown]
  - Electrocardiogram ST segment depression [Unknown]
  - Lactic acidosis [Unknown]
  - Anaemia [Unknown]
  - Asthenia [Unknown]
  - Drug ineffective [Fatal]
  - Tachypnoea [Unknown]
  - Liver injury [Fatal]
  - Confusional state [Unknown]
  - Chromaturia [Unknown]
  - Hyperkalaemia [Unknown]
